FAERS Safety Report 22217923 (Version 3)
Quarter: 2024Q4

REPORT INFORMATION
  Report Type: Report from Study
  Country: EG (occurrence: EG)
  Receive Date: 20230417
  Receipt Date: 20241112
  Transmission Date: 20250114
  Serious: Yes (Hospitalization, Other)
  Sender: NOVARTIS
  Company Number: EG-002147023-NVSC2023EG084178

PATIENT
  Sex: Male

DRUGS (2)
  1. GILENYA [Suspect]
     Active Substance: FINGOLIMOD HYDROCHLORIDE
     Indication: Multiple sclerosis
     Dosage: 0.5 MG, QD STOPPED IN MAR 2023 (FOR A WEEK AND HALF (LOT NUMBER FOR MEDICAL DEVICE: 10076822693659)
     Route: 048
     Dates: start: 202112, end: 202303
  2. GILENYA [Suspect]
     Active Substance: FINGOLIMOD HYDROCHLORIDE
     Dosage: QD (STARTED 17 OR 18 MAR 2023)
     Route: 048
     Dates: start: 202303

REACTIONS (8)
  - Multiple sclerosis relapse [Recovered/Resolved]
  - Hypoaesthesia [Recovering/Resolving]
  - Back pain [Recovering/Resolving]
  - Limb discomfort [Recovered/Resolved]
  - Pain in extremity [Unknown]
  - Decreased immune responsiveness [Unknown]
  - Renal function test abnormal [Unknown]
  - Hepatic enzyme increased [Unknown]

NARRATIVE: CASE EVENT DATE: 20210101
